FAERS Safety Report 16243384 (Version 1)
Quarter: 2019Q2

REPORT INFORMATION
  Report Type: Spontaneous
  Country: CA (occurrence: CA)
  Receive Date: 20190426
  Receipt Date: 20190426
  Transmission Date: 20190711
  Serious: Yes (Other)
  Sender: FDA-Public Use
  Company Number: CA-PFIZER INC-2019174678

PATIENT

DRUGS (3)
  1. TYLENOL [Suspect]
     Active Substance: ACETAMINOPHEN
     Dosage: 4 DF, ONCE
     Route: 048
  2. IBUPROFEN. [Suspect]
     Active Substance: IBUPROFEN
     Dosage: 3 DF, ONCE
     Route: 048
  3. MELATONIN [Suspect]
     Active Substance: MELATONIN
     Dosage: 10 DF, ONCE
     Route: 065

REACTIONS (1)
  - Suicide attempt [Unknown]
